FAERS Safety Report 4547186-6 (Version None)
Quarter: 2005Q1

REPORT INFORMATION
  Report Type: 
  Country: None (occurrence: None)
  Receive Date: 20050107
  Receipt Date: 20041206
  Transmission Date: 20050727
  Serious: Yes (Other)
  Sender: FDA-Public Use
  Company Number: PHNU2004DE04084

PATIENT
  Age: 66 Year
  Sex: Female
  Weight: 82 kg

DRUGS (1)
  1. DICLOFENAC SODIUM [Suspect]
     Indication: ANALGESIC EFFECT
     Dates: start: 20020801, end: 20030101

REACTIONS (2)
  - POLYMYALGIA RHEUMATICA [None]
  - VASCULITIS [None]
